FAERS Safety Report 6066579-1 (Version None)
Quarter: 2009Q1

REPORT INFORMATION
  Report Type: 
  Country: None (occurrence: None)
  Receive Date: 20090205
  Receipt Date: 20090130
  Transmission Date: 20090719
  Serious: Yes (Death)
  Sender: FDA-Public Use
  Company Number: A0766714A

PATIENT
  Age: 58 Year
  Sex: Male

DRUGS (4)
  1. AVANDIA [Suspect]
     Dosage: 4MG PER DAY
     Dates: start: 20000511, end: 20030119
  2. GLUCOPHAGE [Concomitant]
     Dates: start: 19980801, end: 20030119
  3. AMARYL [Concomitant]
     Dates: end: 20030119
  4. MICRONASE [Concomitant]
     Dates: end: 20030119

REACTIONS (3)
  - ARTERIOSCLEROSIS CORONARY ARTERY [None]
  - CORONARY ARTERY DISEASE [None]
  - MYOCARDIAL INFARCTION [None]
